FAERS Safety Report 4795262-5 (Version None)
Quarter: 2005Q4

REPORT INFORMATION
  Report Type: 
  Country: None (occurrence: None)
  Receive Date: 20051012
  Receipt Date: 20051003
  Transmission Date: 20060501
  Serious: Yes (Other)
  Sender: FDA-Public Use
  Company Number: 200513262FR

PATIENT
  Age: 70 Year
  Sex: Female

DRUGS (3)
  1. LOVENOX [Suspect]
     Indication: POST PROCEDURAL COMPLICATION
     Route: 058
     Dates: start: 20050910
  2. LOVENOX [Suspect]
     Indication: PROPHYLAXIS
     Route: 058
     Dates: start: 20050910
  3. ANTIHYPERTENSIVES [Concomitant]

REACTIONS (1)
  - THROMBOCYTHAEMIA [None]
